FAERS Safety Report 6929797-3 (Version None)
Quarter: 2010Q3

REPORT INFORMATION
  Report Type: 
  Country: None (occurrence: None)
  Receive Date: 20100818
  Receipt Date: 20100813
  Transmission Date: 20110219
  Serious: Yes (Death)
  Sender: FDA-Public Use
  Company Number: CH-ROXANE LABORATORIES, INC.-2010-RO-01065RO

PATIENT

DRUGS (1)
  1. METHADONE HCL [Suspect]

REACTIONS (1)
  - CARDIOVASCULAR DISORDER [None]
